FAERS Safety Report 9052027 (Version 3)
Quarter: 2014Q1

REPORT INFORMATION
  Report Type: Spontaneous
  Country: US (occurrence: US)
  Receive Date: 20130207
  Receipt Date: 20140328
  Transmission Date: 20141002
  Serious: Yes (Hospitalization, Other)
  Sender: FDA-Public Use
  Company Number: US-BAYER-2013-014252

PATIENT
  Age: 23 Year
  Sex: Female
  Weight: 112.47 kg

DRUGS (2)
  1. MIRENA [Suspect]
     Indication: CONTRACEPTION
     Dosage: 20 MCG/24HR, CONT
     Route: 015
     Dates: start: 20110524, end: 20120803
  2. FLAGYL [Concomitant]

REACTIONS (5)
  - Medical device complication [None]
  - Device dislocation [None]
  - Pain [None]
  - Injury [None]
  - Device issue [None]
